FAERS Safety Report 7827882-5 (Version None)
Quarter: 2011Q4

REPORT INFORMATION
  Report Type: 
  Country: None (occurrence: None)
  Receive Date: 20111020
  Receipt Date: 20110922
  Transmission Date: 20120403
  Serious: Yes (Other)
  Sender: FDA-Public Use
  Company Number: BR-US-EMD SERONO, INC.-7085437

PATIENT
  Sex: Female

DRUGS (7)
  1. TYLENOL-500 [Concomitant]
  2. ALPRAZOLAM [Concomitant]
  3. ALENTUS [Concomitant]
  4. REBIF [Suspect]
     Indication: PRODUCT USED FOR UNKNOWN INDICATION
     Dates: start: 20030401
  5. METFORMIN HCL [Concomitant]
  6. DEPAKOTE [Concomitant]
  7. MANTIDAN [Concomitant]

REACTIONS (5)
  - CONSTIPATION [None]
  - URINARY RETENTION [None]
  - INSOMNIA [None]
  - FATIGUE [None]
  - DIABETES MELLITUS [None]
